FAERS Safety Report 5243892-9 (Version None)
Quarter: 2007Q1

REPORT INFORMATION
  Report Type: 
  Country: None (occurrence: None)
  Receive Date: 20070215
  Receipt Date: 20070131
  Transmission Date: 20070707
  Serious: Yes (Other)
  Sender: FDA-Public Use
  Company Number: 8021836

PATIENT
  Age: 66 Year
  Sex: Male

DRUGS (2)
  1. KEPPRA [Suspect]
     Dosage: 1000 MG 2/D
     Dates: start: 20050101
  2. LAMICTAL [Concomitant]

REACTIONS (2)
  - SUICIDAL IDEATION [None]
  - THINKING ABNORMAL [None]
